FAERS Safety Report 19483557 (Version 1)
Quarter: 2021Q3

REPORT INFORMATION
  Report Type: Spontaneous
  Country: CN (occurrence: CN)
  Receive Date: 20210701
  Receipt Date: 20210701
  Transmission Date: 20211014
  Serious: Yes (Hospitalization)
  Sender: FDA-Public Use
  Company Number: CN-TAKEDA-2021TUS040755

PATIENT
  Age: 40 Year
  Sex: Male

DRUGS (1)
  1. FEBUXOSTAT. [Suspect]
     Active Substance: FEBUXOSTAT
     Indication: GOUT
     Dosage: UNK
     Route: 065

REACTIONS (16)
  - Abdominal tenderness [Unknown]
  - Musculoskeletal chest pain [Unknown]
  - Hyperglycaemia [Unknown]
  - Decreased appetite [Unknown]
  - Pancreatic enzymes increased [Unknown]
  - Nausea [Unknown]
  - Depressed mood [Unknown]
  - Dry skin [Unknown]
  - Polyuria [Unknown]
  - Hepatic steatosis [Unknown]
  - Constipation [Unknown]
  - Sinus tachycardia [Unknown]
  - Urine output decreased [Unknown]
  - Vomiting [Unknown]
  - Polydipsia [Unknown]
  - Dry mouth [Unknown]
